FAERS Safety Report 16135713 (Version 3)
Quarter: 2019Q2

REPORT INFORMATION
  Report Type: Spontaneous
  Country: BE (occurrence: BE)
  Receive Date: 20190329
  Receipt Date: 20190517
  Transmission Date: 20190711
  Serious: Yes (Other)
  Sender: FDA-Public Use
  Company Number: BE-SEATTLE GENETICS-2019SGN00893

PATIENT
  Age: 49 Year
  Sex: Male

DRUGS (1)
  1. ADCETRIS [Suspect]
     Active Substance: BRENTUXIMAB VEDOTIN
     Indication: HODGKIN^S DISEASE REFRACTORY
     Dosage: UNK
     Route: 065
     Dates: start: 201804

REACTIONS (5)
  - Drug ineffective [Unknown]
  - Cough [Unknown]
  - Chest discomfort [Unknown]
  - Metastatic lymphoma [Unknown]
  - Night sweats [Unknown]

NARRATIVE: CASE EVENT DATE: 201807
